FAERS Safety Report 15784423 (Version 1)
Quarter: 2019Q1

REPORT INFORMATION
  Report Type: Spontaneous
  Country: IE (occurrence: IE)
  Receive Date: 20190103
  Receipt Date: 20190103
  Transmission Date: 20190417
  Serious: Yes (Life-Threatening)
  Sender: FDA-Public Use
  Company Number: IE-REGULIS-2060793

PATIENT
  Age: 46 Year
  Sex: Female
  Weight: 86 kg

DRUGS (2)
  1. METHYLENE BLUE. [Suspect]
     Active Substance: METHYLENE BLUE
     Indication: LYMPHATIC MAPPING
     Route: 058
     Dates: start: 20181203, end: 20181203
  2. CHLORHEXIDINE [Concomitant]
     Active Substance: CHLORHEXIDINE
     Dates: start: 20181203, end: 20181203

REACTIONS (5)
  - Airway peak pressure increased [Unknown]
  - Wheezing [Unknown]
  - Anaphylactic reaction [Unknown]
  - Urticaria [Unknown]
  - Incorrect route of product administration [Unknown]

NARRATIVE: CASE EVENT DATE: 20181203
